FAERS Safety Report 5626089-X (Version None)
Quarter: 2008Q1

REPORT INFORMATION
  Report Type: 
  Country: None (occurrence: None)
  Receive Date: 20080211
  Receipt Date: 20080128
  Transmission Date: 20080703
  Serious: Yes (Other)
  Sender: FDA-Public Use
  Company Number: S08-ESP-00456-01

PATIENT
  Age: 77 Year
  Sex: Female

DRUGS (4)
  1. ESCITALOPRAM [Suspect]
     Indication: DEPRESSION
     Dosage: 5 MG QD PO
     Route: 048
     Dates: start: 20071201
  2. MODURETIC 5-50 [Suspect]
     Indication: HYPERTENSION
     Dosage: 0.5 TABLET QD PO
     Route: 048
     Dates: end: 20071201
  3. ATENOLOL [Concomitant]
  4. SIMVASTATIN [Concomitant]

REACTIONS (3)
  - DRUG INTERACTION [None]
  - HYPONATRAEMIA [None]
  - SYNCOPE [None]
